FAERS Safety Report 10925210 (Version 3)
Quarter: 2015Q2

REPORT INFORMATION
  Report Type: Spontaneous
  Country: JP (occurrence: JP)
  Receive Date: 20150318
  Receipt Date: 20150414
  Transmission Date: 20150821
  Serious: Yes (Other)
  Sender: FDA-Public Use
  Company Number: JP-009507513-1503JPN008537

PATIENT
  Age: 29 Year
  Sex: Female

DRUGS (2)
  1. SINGULAIR [Suspect]
     Active Substance: MONTELUKAST SODIUM
     Dosage: UNK (DAILY DOSE UNKNOWN)
     Route: 048
     Dates: start: 201307, end: 201307
  2. [THERAPY UNSPECIFIED] [Suspect]
     Active Substance: UNSPECIFIED INGREDIENT
     Route: 065

REACTIONS (2)
  - Drug eruption [Unknown]
  - Drug-induced liver injury [Unknown]
